FAERS Safety Report 7236473-9 (Version None)
Quarter: 2011Q1

REPORT INFORMATION
  Report Type: 
  Country: None (occurrence: None)
  Receive Date: 20110120
  Receipt Date: 20110111
  Transmission Date: 20110831
  Serious: Yes (Other)
  Sender: FDA-Public Use
  Company Number: US-ASTRAZENECA-2009UW03515

PATIENT
  Age: 15221 Day
  Sex: Female

DRUGS (2)
  1. NEXIUM [Suspect]
     Route: 048
     Dates: start: 20051108
  2. CRESTOR [Suspect]
     Route: 048

REACTIONS (3)
  - DRY MOUTH [None]
  - DIABETES MELLITUS [None]
  - MALAISE [None]
